FAERS Safety Report 20753852 (Version 1)
Quarter: 2022Q2

REPORT INFORMATION
  Report Type: Spontaneous
  Country: US (occurrence: None)
  Receive Date: 20220426
  Receipt Date: 20220426
  Transmission Date: 20220721
  Serious: No
  Sender: FDA-Public Use
  Company Number: US-ROCHE-3023946

PATIENT
  Age: 65 Year
  Sex: Female
  Weight: 70.370 kg

DRUGS (3)
  1. ESBRIET [Suspect]
     Active Substance: PIRFENIDONE
     Indication: Idiopathic pulmonary fibrosis
     Dosage: 1-267MG TABLET TAKEN FOR 1 WEEK WITH FOOD
     Route: 048
     Dates: start: 202201
  2. ESBRIET [Suspect]
     Active Substance: PIRFENIDONE
     Dosage: 2-267MG TABLETS TAKEN FOR 1 WEEK WITH FOOD
     Route: 048
     Dates: start: 202201
  3. ESBRIET [Suspect]
     Active Substance: PIRFENIDONE
     Dosage: 3-267MG TABLETS TAKEN WITH FOOD
     Route: 048
     Dates: start: 202201

REACTIONS (10)
  - Fatigue [Unknown]
  - Dizziness [Not Recovered/Not Resolved]
  - Feeling abnormal [Unknown]
  - Nausea [Not Recovered/Not Resolved]
  - Diarrhoea [Recovered/Resolved]
  - COVID-19 [Unknown]
  - Fatigue [Not Recovered/Not Resolved]
  - Abdominal pain upper [Not Recovered/Not Resolved]
  - Headache [Not Recovered/Not Resolved]
  - Product dose omission issue [Unknown]

NARRATIVE: CASE EVENT DATE: 20220127
